FAERS Safety Report 19407399 (Version 21)
Quarter: 2022Q2

REPORT INFORMATION
  Report Type: Report from Study
  Country: DK (occurrence: None)
  Receive Date: 20210611
  Receipt Date: 20220630
  Transmission Date: 20220720
  Serious: Yes (Hospitalization, Other)
  Sender: FDA-Public Use
  Company Number: DK-ROCHE-2826384

PATIENT
  Age: 62 Year
  Sex: Female
  Weight: 63.4 kg

DRUGS (56)
  1. RO-7425781 [Suspect]
     Active Substance: RO-7425781
     Indication: Plasma cell myeloma
     Dosage: DATE OF MOST RECENT DOSE (0.03 MG) OF RO7425781 (GPRC5D-TCB) PRIOR TO SAE: 05/MAY/2021, AT 11:54 AM-
     Route: 042
     Dates: start: 20210505
  2. TOCILIZUMAB [Suspect]
     Active Substance: TOCILIZUMAB
     Indication: Plasma cell myeloma
     Dosage: START DATE OF MOST RECENT DOSE OF DRUG ON 05/MAY/2021, 507.2 MG AT 11:13 PM?END DATE OF MOST RECENT
     Route: 042
     Dates: start: 20210505, end: 20210506
  3. ACETAMINOPHEN [Concomitant]
     Active Substance: ACETAMINOPHEN
     Indication: Pain
     Route: 048
     Dates: start: 20210526, end: 20210526
  4. ACETAMINOPHEN [Concomitant]
     Active Substance: ACETAMINOPHEN
     Route: 048
     Dates: start: 20210603, end: 20210603
  5. ACETAMINOPHEN [Concomitant]
     Active Substance: ACETAMINOPHEN
     Route: 048
     Dates: start: 20210505, end: 20210505
  6. ACETAMINOPHEN [Concomitant]
     Active Substance: ACETAMINOPHEN
     Route: 048
     Dates: start: 20210207
  7. CETIRIZINE [Concomitant]
     Active Substance: CETIRIZINE HYDROCHLORIDE
     Route: 048
     Dates: start: 20210526, end: 20210526
  8. CETIRIZINE [Concomitant]
     Active Substance: CETIRIZINE HYDROCHLORIDE
     Route: 048
     Dates: start: 20210505, end: 20210505
  9. CETIRIZINE [Concomitant]
     Active Substance: CETIRIZINE HYDROCHLORIDE
     Route: 048
     Dates: start: 20210603, end: 20210603
  10. CETIRIZINE [Concomitant]
     Active Substance: CETIRIZINE HYDROCHLORIDE
     Route: 048
     Dates: start: 20210526, end: 20210526
  11. CETIRIZINE [Concomitant]
     Active Substance: CETIRIZINE HYDROCHLORIDE
     Route: 048
  12. PREDNISOLONE [Concomitant]
     Active Substance: PREDNISOLONE
     Indication: Muscular weakness
     Route: 048
     Dates: start: 20210520
  13. OXYGEN [Concomitant]
     Active Substance: OXYGEN
     Indication: Hypoxia
     Dosage: 1 L/MIN
     Dates: start: 20210526, end: 20210526
  14. OXYGEN [Concomitant]
     Active Substance: OXYGEN
     Dates: start: 20210526, end: 20210526
  15. OXYGEN [Concomitant]
     Active Substance: OXYGEN
     Dosage: 2 L/MIN
     Dates: start: 20210527, end: 20210527
  16. OXYGEN [Concomitant]
     Active Substance: OXYGEN
     Dates: start: 20210505, end: 20210506
  17. OXYGEN [Concomitant]
     Active Substance: OXYGEN
     Dosage: 2 L/MIN
     Dates: start: 20210604, end: 20210604
  18. OXYGEN [Concomitant]
     Active Substance: OXYGEN
     Dates: start: 20210604, end: 20210604
  19. OXYGEN [Concomitant]
     Active Substance: OXYGEN
     Dates: start: 20210603, end: 20210604
  20. OXYGEN [Concomitant]
     Active Substance: OXYGEN
     Dosage: 2 L/MIN
     Dates: start: 20210603, end: 20210604
  21. OXYGEN [Concomitant]
     Active Substance: OXYGEN
     Dates: start: 20210506, end: 20210506
  22. OXYGEN [Concomitant]
     Active Substance: OXYGEN
     Dosage: 2 L/MIN
     Dates: start: 20210505, end: 20210506
  23. OXYGEN [Concomitant]
     Active Substance: OXYGEN
     Dates: start: 20210505, end: 20210506
  24. OXYGEN [Concomitant]
     Active Substance: OXYGEN
     Dosage: 1 L/MIN
     Dates: start: 20210526, end: 20210526
  25. CETIRIZINE [Concomitant]
     Active Substance: CETIRIZINE HYDROCHLORIDE
     Route: 048
     Dates: start: 20210526, end: 20210526
  26. CETIRIZINE [Concomitant]
     Active Substance: CETIRIZINE HYDROCHLORIDE
     Route: 048
     Dates: start: 20210603, end: 20210603
  27. CETIRIZINE [Concomitant]
     Active Substance: CETIRIZINE HYDROCHLORIDE
     Route: 048
     Dates: start: 20210623, end: 20210623
  28. DEXAMETHASONE [Concomitant]
     Active Substance: DEXAMETHASONE
     Indication: Cytokine release syndrome
     Route: 042
     Dates: start: 20210526, end: 20210526
  29. DEXAMETHASONE [Concomitant]
     Active Substance: DEXAMETHASONE
     Route: 042
     Dates: start: 20210603, end: 20210603
  30. DEXAMETHASONE [Concomitant]
     Active Substance: DEXAMETHASONE
     Route: 042
     Dates: start: 20210505, end: 20210505
  31. DEXAMETHASONE [Concomitant]
     Active Substance: DEXAMETHASONE
     Route: 042
     Dates: start: 20210623, end: 20210623
  32. DEXAMETHASONE [Concomitant]
     Active Substance: DEXAMETHASONE
     Dates: start: 20211109
  33. DEXAMETHASONE [Concomitant]
     Active Substance: DEXAMETHASONE
     Dates: start: 20170905, end: 20210408
  34. DEXAMETHASONE [Concomitant]
     Active Substance: DEXAMETHASONE
     Dates: start: 20211027, end: 20211130
  35. DEXAMETHASONE [Concomitant]
     Active Substance: DEXAMETHASONE
     Dates: start: 20211214
  36. HUMAN RED BLOOD CELL [Concomitant]
     Active Substance: HUMAN RED BLOOD CELL
     Indication: Anaemia
     Route: 042
     Dates: start: 20210605, end: 20210605
  37. ZOPICLONE [Concomitant]
     Active Substance: ZOPICLONE
     Indication: Insomnia
     Route: 048
     Dates: start: 20210303
  38. BENDROFLUMETHIAZIDE;POTASSIUM [Concomitant]
     Indication: Blood pressure measurement
     Route: 048
     Dates: start: 20190816
  39. ACYCLOVIR [Concomitant]
     Active Substance: ACYCLOVIR
     Indication: Herpes virus infection
     Route: 048
     Dates: start: 20190813
  40. FELODIPINE [Concomitant]
     Active Substance: FELODIPINE
     Indication: Blood pressure measurement
     Route: 048
     Dates: start: 20171216
  41. CARFILZOMIB [Concomitant]
     Active Substance: CARFILZOMIB
     Dates: start: 20170905, end: 20210408
  42. CARFILZOMIB [Concomitant]
     Active Substance: CARFILZOMIB
     Dates: start: 20170905, end: 20210408
  43. CARFILZOMIB [Concomitant]
     Active Substance: CARFILZOMIB
     Dates: start: 20211214
  44. CYCLOPHOSPHAMIDE [Concomitant]
     Active Substance: CYCLOPHOSPHAMIDE
     Dates: start: 20170905, end: 20210408
  45. OXYGEN [Concomitant]
     Active Substance: OXYGEN
     Indication: Hypoxia
     Dates: start: 20210506, end: 20210506
  46. OXYGEN [Concomitant]
     Active Substance: OXYGEN
     Dates: start: 20210506, end: 20210507
  47. OXYGEN [Concomitant]
     Active Substance: OXYGEN
     Dosage: 2 L/MIN
     Dates: start: 20210505, end: 20210506
  48. OXYGEN [Concomitant]
     Active Substance: OXYGEN
     Dates: start: 20210505, end: 20210506
  49. OXYGEN [Concomitant]
     Active Substance: OXYGEN
     Dosage: 2 L/MIN
     Dates: start: 20210506, end: 20210506
  50. OXYGEN [Concomitant]
     Active Substance: OXYGEN
     Dosage: 3 L/MIN
     Dates: start: 20210505, end: 20210506
  51. OXYGEN [Concomitant]
     Active Substance: OXYGEN
     Dates: start: 20210505, end: 20210506
  52. OXYGEN [Concomitant]
     Active Substance: OXYGEN
     Dosage: 1 L/MIN
     Dates: start: 20210506, end: 20210507
  53. LIPEGFILGRASTIM [Concomitant]
     Active Substance: LIPEGFILGRASTIM
     Indication: Neutropenia
     Route: 058
     Dates: start: 20210519, end: 20210519
  54. ACETAMINOPHEN [Concomitant]
     Active Substance: ACETAMINOPHEN
     Route: 048
     Dates: start: 20210623, end: 20210623
  55. ALLOPURINOL [Concomitant]
     Active Substance: ALLOPURINOL
     Indication: Hyperuricaemia
     Route: 048
     Dates: start: 20210609
  56. FORMIC ACID [Concomitant]
     Active Substance: FORMIC ACID
     Dosage: DOSAGE UNIT:TUBE
     Route: 061
     Dates: start: 20210421

REACTIONS (9)
  - Cytokine release syndrome [Recovered/Resolved]
  - Cytokine release syndrome [Recovered/Resolved]
  - Cytokine release syndrome [Recovered/Resolved]
  - Alanine aminotransferase increased [Recovered/Resolved]
  - Alanine aminotransferase increased [Recovered/Resolved]
  - Alanine aminotransferase increased [Recovered/Resolved]
  - Aspartate aminotransferase increased [Recovered/Resolved]
  - Aspartate aminotransferase increased [Recovered/Resolved]
  - Hypertransaminasaemia [Recovering/Resolving]

NARRATIVE: CASE EVENT DATE: 20210505
